FAERS Safety Report 19164479 (Version 2)
Quarter: 2021Q2

REPORT INFORMATION
  Report Type: Spontaneous
  Country: US (occurrence: US)
  Receive Date: 20210421
  Receipt Date: 20210423
  Transmission Date: 20210717
  Serious: No
  Sender: FDA-Public Use
  Company Number: US-MYLANLABS-2021M1021528

PATIENT
  Sex: Female

DRUGS (2)
  1. XULANE [Suspect]
     Active Substance: ETHINYL ESTRADIOL\NORELGESTROMIN
     Indication: DYSMENORRHOEA
     Dosage: UNK 35/150 MICROGRAM, WEEKLY
     Route: 062
  2. XULANE [Suspect]
     Active Substance: ETHINYL ESTRADIOL\NORELGESTROMIN
     Indication: HEAVY MENSTRUAL BLEEDING

REACTIONS (3)
  - Intentional product misuse [Not Recovered/Not Resolved]
  - Intermenstrual bleeding [Unknown]
  - Product use in unapproved indication [Not Recovered/Not Resolved]
